FAERS Safety Report 8267014-5 (Version None)
Quarter: 2012Q2

REPORT INFORMATION
  Report Type: 
  Country: None (occurrence: None)
  Receive Date: 20120409
  Receipt Date: 20120403
  Transmission Date: 20120825
  Serious: No
  Sender: FDA-Public Use
  Company Number: US-PFIZER INC-2012084488

PATIENT
  Sex: Female
  Weight: 79.365 kg

DRUGS (4)
  1. EFFEXOR XR [Suspect]
     Dosage: 75 MG, DAILY
  2. LOSARTAN [Concomitant]
     Indication: HYPERTENSION
     Dosage: UNK
  3. METFORMIN [Concomitant]
     Indication: DIABETES MELLITUS
     Dosage: UNK
  4. EFFEXOR XR [Suspect]
     Indication: DEPRESSION
     Dosage: 75 MG, 3X/DAY
     Route: 048
     Dates: end: 20111101

REACTIONS (11)
  - INTENTIONAL DRUG MISUSE [None]
  - PARAESTHESIA [None]
  - TINNITUS [None]
  - FEELING ABNORMAL [None]
  - IMPAIRED DRIVING ABILITY [None]
  - DIZZINESS [None]
  - HEADACHE [None]
  - NAUSEA [None]
  - GASTRIC DISORDER [None]
  - VERTIGO [None]
  - ANXIETY [None]
